APPROVED DRUG PRODUCT: BROMODIPHENHYDRAMINE HYDROCHLORIDE AND CODEINE PHOSPHATE
Active Ingredient: BROMODIPHENHYDRAMINE HYDROCHLORIDE; CODEINE PHOSPHATE
Strength: 12.5MG/5ML;10MG/5ML
Dosage Form/Route: SYRUP;ORAL
Application: A088626 | Product #001
Applicant: WOCKHARDT EU OPERATIONS (SWISS) AG
Approved: Oct 12, 1984 | RLD: No | RS: No | Type: DISCN